FAERS Safety Report 23301764 (Version 2)
Quarter: 2023Q4

REPORT INFORMATION
  Report Type: Spontaneous
  Country: US (occurrence: US)
  Receive Date: 20231215
  Receipt Date: 20231231
  Transmission Date: 20240109
  Serious: No
  Sender: FDA-Public Use
  Company Number: US-SANOFI-01870261

PATIENT
  Sex: Male
  Weight: 129 kg

DRUGS (2)
  1. CEREZYME [Suspect]
     Active Substance: IMIGLUCERASE
     Indication: Gaucher^s disease
     Dosage: 7600 U, QOW
  2. CEREZYME [Suspect]
     Active Substance: IMIGLUCERASE
     Dosage: 8000 U, QOW

REACTIONS (2)
  - Weight increased [Not Recovered/Not Resolved]
  - Circumstance or information capable of leading to medication error [Unknown]
